FAERS Safety Report 15246423 (Version 1)
Quarter: 2018Q3

REPORT INFORMATION
  Report Type: Report from Study
  Country: US (occurrence: US)
  Receive Date: 20180806
  Receipt Date: 20180806
  Transmission Date: 20181010
  Serious: No
  Sender: FDA-Public Use
  Company Number: PHEH2018US031344

PATIENT
  Sex: Male

DRUGS (3)
  1. ENTRESTO [Suspect]
     Active Substance: SACUBITRIL\VALSARTAN
     Indication: CARDIAC DISORDER
     Dosage: UNK UNK, QD (SACUBITRIL 49 MG/ VALSARTAN 51 MG)
     Route: 048
  2. ENTRESTO [Suspect]
     Active Substance: SACUBITRIL\VALSARTAN
     Indication: EJECTION FRACTION
     Dosage: UNK, BID (SACUBITRIL 97 MG/ VALSARTAN 103 MG)
     Route: 048
  3. ENTRESTO [Suspect]
     Active Substance: SACUBITRIL\VALSARTAN
     Dosage: 2 DF, QD (SACUBITRIL 24 MG/ VALSARTAN 26 MG)
     Route: 048
     Dates: start: 20180721

REACTIONS (1)
  - Joint swelling [Unknown]
